FAERS Safety Report 11825710 (Version 1)
Quarter: 2015Q4

REPORT INFORMATION
  Report Type: Spontaneous
  Country: US (occurrence: US)
  Receive Date: 20151211
  Receipt Date: 20151211
  Transmission Date: 20160305
  Serious: No
  Sender: FDA-Public Use
  Company Number: US-JNJFOC-20150408757

PATIENT
  Age: 73 Year
  Sex: Female

DRUGS (9)
  1. IMBRUVICA [Suspect]
     Active Substance: IBRUTINIB
     Indication: CHRONIC LYMPHOCYTIC LEUKAEMIA
     Route: 048
     Dates: start: 20150206
  2. GLIPIZIDE/METFORMIN [Concomitant]
     Active Substance: GLIPIZIDE\METFORMIN HYDROCHLORIDE
  3. GAVISCON [Concomitant]
     Active Substance: ALUMINUM HYDROXIDE\MAGNESIUM CARBONATE
  4. TYLENOL 8 HR [Concomitant]
     Active Substance: ACETAMINOPHEN
     Route: 065
  5. BENICAR HCT [Concomitant]
     Active Substance: HYDROCHLOROTHIAZIDE\OLMESARTAN MEDOXOMIL
  6. ZANTAC [Concomitant]
     Active Substance: RANITIDINE HYDROCHLORIDE
  7. ASPIRINE [Concomitant]
     Active Substance: ASPIRIN
  8. ATORVASTATIN CALCIUM. [Concomitant]
     Active Substance: ATORVASTATIN CALCIUM
  9. METOPROLOL [Concomitant]
     Active Substance: METOPROLOL

REACTIONS (5)
  - Arthralgia [Not Recovered/Not Resolved]
  - Vitamin D deficiency [Unknown]
  - Onychoclasis [Unknown]
  - Hyperkeratosis [Unknown]
  - Onychomadesis [Unknown]

NARRATIVE: CASE EVENT DATE: 2015
